FAERS Safety Report 8548212-X (Version None)
Quarter: 2012Q3

REPORT INFORMATION
  Report Type: 
  Country: None (occurrence: None)
  Receive Date: 20120730
  Receipt Date: 20120627
  Transmission Date: 20120928
  Serious: No
  Sender: FDA-Public Use
  Company Number: US-009507513-2012SP035581

PATIENT

DRUGS (2)
  1. IMPLANON [Suspect]
     Dosage: UNK
     Dates: start: 20120621
  2. IMPLANON [Suspect]
     Indication: PRODUCT USED FOR UNKNOWN INDICATION
     Dosage: UNK
     Dates: start: 20120621, end: 20120621

REACTIONS (1)
  - MEDICAL DEVICE COMPLICATION [None]
